FAERS Safety Report 4832186-9 (Version None)
Quarter: 2005Q4

REPORT INFORMATION
  Report Type: 
  Country: None (occurrence: None)
  Receive Date: 20051114
  Receipt Date: 20051101
  Transmission Date: 20060501
  Serious: Yes (Hospitalization)
  Sender: FDA-Public Use
  Company Number: 200510537BYL

PATIENT
  Sex: Male

DRUGS (1)
  1. GLUCOBAY [Suspect]
     Indication: DIABETES MELLITUS
     Dosage: 300 MG, TOTAL DAILY, ORAL
     Route: 048

REACTIONS (2)
  - DIAPHRAGMATIC HERNIA [None]
  - FLATULENCE [None]
